FAERS Safety Report 5685325-4 (Version None)
Quarter: 2008Q1

REPORT INFORMATION
  Report Type: 
  Country: None (occurrence: None)
  Receive Date: 20080328
  Receipt Date: 20080317
  Transmission Date: 20080703
  Serious: Yes (Other)
  Sender: FDA-Public Use
  Company Number: US-PFIZER INC-2008024477

PATIENT
  Age: 79 Year
  Sex: Female
  Weight: 56.7 kg

DRUGS (18)
  1. ATORVASTATIN CALCIUM [Suspect]
     Indication: HYPERLIPIDAEMIA
     Route: 048
  2. GEMFIBROZIL [Suspect]
     Indication: HYPERLIPIDAEMIA
     Route: 048
  3. AMLODIPINE [Suspect]
     Route: 048
  4. TOLTERODINE LA [Suspect]
     Indication: URINARY INCONTINENCE
     Route: 048
  5. QUINAPRIL HCL [Suspect]
     Route: 048
  6. LEVOTHYROXINE SODIUM [Suspect]
     Route: 048
  7. LEVOTHYROXINE SODIUM [Suspect]
     Route: 048
  8. DONEPEZIL HCL [Suspect]
     Indication: DEMENTIA ALZHEIMER'S TYPE
     Route: 048
  9. COLESEVELAM [Suspect]
     Indication: HYPERLIPIDAEMIA
     Route: 048
  10. FUROSEMIDE [Suspect]
     Route: 048
  11. CARVEDILOL [Suspect]
     Route: 048
  12. SOLIFENACIN [Suspect]
     Indication: URINARY INCONTINENCE
     Route: 048
  13. TROSPIUM [Suspect]
     Indication: URINARY INCONTINENCE
     Route: 048
  14. CYCLOBENZAPRINE HCL [Suspect]
     Indication: MUSCLE SPASMS
     Route: 048
  15. CLOPIDOGREL [Concomitant]
     Route: 048
  16. ACETYLSALICYLIC ACID SRT [Concomitant]
     Route: 048
  17. ESOMEPRAZOLE MAGNESIUM [Concomitant]
     Route: 048
  18. VITAMIN CAP [Concomitant]
     Route: 048

REACTIONS (7)
  - BLOOD PRESSURE INADEQUATELY CONTROLLED [None]
  - DELIRIUM [None]
  - DEMENTIA ALZHEIMER'S TYPE [None]
  - DRUG DOSE OMISSION [None]
  - EXPIRED DRUG ADMINISTERED [None]
  - MUSCLE SPASMS [None]
  - URINARY INCONTINENCE [None]
